FAERS Safety Report 5026185-4 (Version None)
Quarter: 2006Q2

REPORT INFORMATION
  Report Type: 
  Country: None (occurrence: None)
  Receive Date: 20060608
  Receipt Date: 20060524
  Transmission Date: 20061013
  Serious: Yes (Life-Threatening, Other)
  Sender: FDA-Public Use
  Company Number: 0206019

PATIENT
  Age: 49 Year
  Sex: 0
  Weight: 94 kg

DRUGS (2)
  1. DEPODUR [Suspect]
     Indication: POSTOPERATIVE ANALGESIA
     Dosage: 10 MG (10 MG, 1 ONCE), EPIDURAL
     Route: 008
     Dates: start: 20060503, end: 20060503
  2. MORPHINE [Concomitant]

REACTIONS (6)
  - APNOEA [None]
  - CONVULSION [None]
  - DYSKINESIA [None]
  - OXYGEN SATURATION DECREASED [None]
  - RESPIRATORY DEPRESSION [None]
  - RESPIRATORY RATE DECREASED [None]
